FAERS Safety Report 7492131-7 (Version None)
Quarter: 2011Q2

REPORT INFORMATION
  Report Type: 
  Country: None (occurrence: None)
  Receive Date: 20110519
  Receipt Date: 20110505
  Transmission Date: 20111010
  Serious: Yes (Death)
  Sender: FDA-Public Use
  Company Number: GB-JNJFOC-20110205264

PATIENT
  Sex: Female
  Weight: 68 kg

DRUGS (6)
  1. PENICILLAMINE [Concomitant]
     Route: 065
     Dates: start: 20030214
  2. ADCAL [Concomitant]
  3. THYROXINE [Concomitant]
  4. REMICADE [Suspect]
     Indication: RHEUMATOID ARTHRITIS
     Route: 042
     Dates: start: 20031115
  5. ACETAMINOPHEN [Concomitant]
  6. FUROSEMIDE [Concomitant]

REACTIONS (3)
  - PNEUMONIA [None]
  - PULMONARY HYPERTENSION [None]
  - CLOSTRIDIAL INFECTION [None]
